FAERS Safety Report 5854946-8 (Version None)
Quarter: 2008Q3

REPORT INFORMATION
  Report Type: 
  Country: None (occurrence: None)
  Receive Date: 20080822
  Receipt Date: 20080408
  Transmission Date: 20090109
  Serious: No
  Sender: FDA-Public Use
  Company Number: US-ABBOTT-08P-163-0446348-00

PATIENT
  Age: 40 Year
  Sex: Female

DRUGS (2)
  1. SYNTHROID [Suspect]
     Indication: POST PROCEDURAL HYPOTHYROIDISM
     Dosage: 200 TO 800 MICROGRAMS ONCE A DAY
     Route: 048
     Dates: start: 20000101
  2. SYNTHROID [Suspect]
     Route: 048
     Dates: start: 20080401

REACTIONS (2)
  - HYPOTHYROIDISM [None]
  - MALABSORPTION [None]
